FAERS Safety Report 8555384-X (Version None)
Quarter: 2012Q3

REPORT INFORMATION
  Report Type: 
  Country: None (occurrence: None)
  Receive Date: 20120731
  Receipt Date: 20111010
  Transmission Date: 20120928
  Serious: No
  Sender: FDA-Public Use
  Company Number: US-ASTRAZENECA-2011SE27276

PATIENT
  Age: 63 Year
  Sex: Female
  Weight: 101.6 kg

DRUGS (9)
  1. LORAZEPAM [Concomitant]
  2. SEROQUEL [Suspect]
     Indication: BIPOLAR DISORDER
     Dosage: 25 MG IN AM; 25 MG IN AFTERNOON AND 100 MG HS
     Route: 048
     Dates: start: 20101201
  3. PAROXETINE [Concomitant]
  4. POTASSIUM [Concomitant]
  5. RADINE [Concomitant]
  6. SEROQUEL [Suspect]
     Indication: SCHIZOPHRENIA
     Dosage: 25 MG IN AM; 25 MG IN AFTERNOON AND 100 MG HS
     Route: 048
     Dates: start: 20101201
  7. ZIAC [Concomitant]
  8. LIDODERM [Concomitant]
  9. SIMVASTATIN [Concomitant]

REACTIONS (4)
  - CHAPPED LIPS [None]
  - LIP DRY [None]
  - LACRIMATION INCREASED [None]
  - LIP PAIN [None]
